FAERS Safety Report 10266096 (Version 2)
Quarter: 2014Q3

REPORT INFORMATION
  Report Type: Report from Study
  Country: CA (occurrence: CA)
  Receive Date: 20140627
  Receipt Date: 20140707
  Transmission Date: 20150326
  Serious: Yes (Death, Hospitalization, Other)
  Sender: FDA-Public Use
  Company Number: CA-ABBVIE-14K-028-1251395-00

PATIENT
  Age: 91 Year

DRUGS (1)
  1. LUPRON DEPOT [Suspect]
     Active Substance: LEUPROLIDE ACETATE
     Indication: PROSTATE CANCER
     Route: 030

REACTIONS (2)
  - Myocardial infarction [Fatal]
  - Disease complication [Fatal]

NARRATIVE: CASE EVENT DATE: 201406
